FAERS Safety Report 7866209 (Version 2)
Quarter: 2013Q3

REPORT INFORMATION
  Report Type: Spontaneous
  Country: US (occurrence: US)
  Receive Date: 20110322
  Receipt Date: 20130709
  Transmission Date: 20140515
  Serious: Yes (Death)
  Sender: FDA-Public Use
  Company Number: US-JNJFOC-20110307511

PATIENT
  Sex: Male

DRUGS (2)
  1. REOPRO [Suspect]
     Indication: ACUTE MYOCARDIAL INFARCTION
     Route: 065
  2. HEPARIN [Concomitant]
     Dosage: 5000 UNITS
     Route: 065

REACTIONS (1)
  - Death [Fatal]
